FAERS Safety Report 9083374 (Version 1)
Quarter: 2013Q1

REPORT INFORMATION
  Report Type: Report from Study
  Country: US (occurrence: US)
  Receive Date: 20130130
  Receipt Date: 20130130
  Transmission Date: 20140127
  Serious: No
  Sender: FDA-Public Use
  Company Number: US-ABBOTT-12P-163-0984228-00

PATIENT
  Age: 20 Year
  Sex: Female

DRUGS (5)
  1. HUMIRA [Suspect]
     Indication: BEHCET^S SYNDROME
     Dates: start: 201202
  2. HUMIRA [Suspect]
  3. TRAMADOL [Concomitant]
     Indication: PAIN
     Dosage: 50MG TWICE DAILY
     Route: 048
  4. NAPROXEN [Concomitant]
     Indication: HEADACHE
     Dosage: 550MG TWICE DAILY
     Route: 048
  5. MAXALT [Concomitant]
     Indication: HEADACHE
     Dosage: 10MG DAILY
     Route: 048

REACTIONS (5)
  - Sleep apnoea syndrome [Not Recovered/Not Resolved]
  - Arthralgia [Not Recovered/Not Resolved]
  - Stomatitis [Not Recovered/Not Resolved]
  - Skin lesion [Not Recovered/Not Resolved]
  - Behcet^s syndrome [Not Recovered/Not Resolved]
